FAERS Safety Report 9491360 (Version 1)
Quarter: 2013Q3

REPORT INFORMATION
  Report Type: Spontaneous
  Country: JP (occurrence: JP)
  Receive Date: 20130830
  Receipt Date: 20130830
  Transmission Date: 20140515
  Serious: Yes (Hospitalization)
  Sender: FDA-Public Use
  Company Number: JP-SANOFI-AVENTIS-2013SA084643

PATIENT
  Age: 81 Year
  Sex: Female

DRUGS (4)
  1. PLAVIX [Suspect]
     Indication: ANTICOAGULANT THERAPY
     Route: 048
  2. ASPIRIN [Suspect]
     Indication: ANTICOAGULANT THERAPY
     Route: 065
  3. WARFARIN POTASSIUM [Suspect]
     Indication: ANTICOAGULANT THERAPY
     Route: 065
  4. XYLOCAINE [Concomitant]
     Indication: ANAESTHESIA
     Dosage: STRENGTH: 2%

REACTIONS (5)
  - Intraocular pressure increased [Recovering/Resolving]
  - Iris haemorrhage [Recovered/Resolved]
  - Ciliary body haemorrhage [Recovered/Resolved]
  - Corneal bleeding [Recovering/Resolving]
  - Vitreous haemorrhage [Recovered/Resolved]
